FAERS Safety Report 18896381 (Version 2)
Quarter: 2021Q1

REPORT INFORMATION
  Report Type: Report from Study
  Country: TR (occurrence: TR)
  Receive Date: 20210216
  Receipt Date: 20210218
  Transmission Date: 20210420
  Serious: Yes (Hospitalization, Other)
  Sender: FDA-Public Use
  Company Number: TR-RNT-000007

PATIENT
  Age: 12 Year
  Sex: Male

DRUGS (3)
  1. ARIPIPRAZOLE. [Suspect]
     Active Substance: ARIPIPRAZOLE
     Indication: PRODUCT USED FOR UNKNOWN INDICATION
     Route: 065
  2. CREATINE MONOHYDRATE [Suspect]
     Active Substance: CREATINE MONOHYDRATE
     Indication: PRODUCT USED FOR UNKNOWN INDICATION
     Route: 065
  3. RISPERIDONE. [Suspect]
     Active Substance: RISPERIDONE
     Indication: PRODUCT USED FOR UNKNOWN INDICATION
     Route: 065

REACTIONS (3)
  - Neuroleptic malignant syndrome [Recovering/Resolving]
  - Creatine deficiency syndrome [Recovering/Resolving]
  - Extrapyramidal disorder [Recovering/Resolving]
